FAERS Safety Report 16220889 (Version 1)
Quarter: 2019Q2

REPORT INFORMATION
  Report Type: Spontaneous
  Country: DE (occurrence: DE)
  Receive Date: 20190421
  Receipt Date: 20190421
  Transmission Date: 20190711
  Serious: Yes (Hospitalization, Other)
  Sender: FDA-Public Use
  Company Number: PHHY2019DE088153

PATIENT
  Age: 2 Year
  Sex: Female
  Weight: 11 kg

DRUGS (1)
  1. AZITHROMYCIN HEXAL [Suspect]
     Active Substance: AZITHROMYCIN ANHYDROUS
     Indication: PRODUCT USED FOR UNKNOWN INDICATION
     Dosage: 200MG / 5ML
     Route: 048

REACTIONS (4)
  - Seizure [Recovered/Resolved]
  - Personality change [Recovered/Resolved]
  - Intentional self-injury [Recovered/Resolved]
  - Apathy [Recovered/Resolved]

NARRATIVE: CASE EVENT DATE: 20190312
